FAERS Safety Report 22380115 (Version 2)
Quarter: 2023Q2

REPORT INFORMATION
  Report Type: Spontaneous
  Country: US (occurrence: US)
  Receive Date: 20230529
  Receipt Date: 20230614
  Transmission Date: 20230722
  Serious: Yes (Other)
  Sender: FDA-Public Use
  Company Number: US-APIL-2311680US

PATIENT
  Sex: Male

DRUGS (1)
  1. REFRESH PLUS [Suspect]
     Active Substance: CARBOXYMETHYLCELLULOSE SODIUM
     Indication: Product used for unknown indication
     Route: 047

REACTIONS (7)
  - Cataract [Unknown]
  - Corneal operation [Unknown]
  - Eye injury [Recovered/Resolved]
  - Product use complaint [Unknown]
  - Product delivery mechanism issue [Unknown]
  - Eye pain [Recovered/Resolved]
  - Corneal abrasion [Unknown]
